FAERS Safety Report 17398740 (Version 1)
Quarter: 2020Q1

REPORT INFORMATION
  Report Type: Spontaneous
  Country: US (occurrence: US)
  Receive Date: 20200210
  Receipt Date: 20200210
  Transmission Date: 20200409
  Serious: No
  Sender: FDA-Public Use
  Company Number: US-VAYAPHARMA-2019-US-002247

PATIENT
  Age: 6 Year
  Sex: Female
  Weight: 24.04 kg

DRUGS (2)
  1. PEDIASURE PEPTIDE 1.5 [Concomitant]
  2. VAYARIN [Suspect]
     Active Substance: DOCONEXENT\ICOSAPENT\PHOSPHATIDYL SERINE
     Indication: ATTENTION DEFICIT/HYPERACTIVITY DISORDER
     Dosage: ONE CAPSULE OVER FOOD TWICE DAILY
     Route: 048
     Dates: start: 20190130, end: 20190203

REACTIONS (4)
  - Change in sustained attention [Not Recovered/Not Resolved]
  - Cluster headache [Not Recovered/Not Resolved]
  - Emotional disorder [Not Recovered/Not Resolved]
  - Sensory overload [Not Recovered/Not Resolved]

NARRATIVE: CASE EVENT DATE: 20190130
